FAERS Safety Report 6431664-9 (Version None)
Quarter: 2009Q4

REPORT INFORMATION
  Report Type: 
  Country: None (occurrence: None)
  Receive Date: 20091103
  Receipt Date: 20091019
  Transmission Date: 20100525
  Serious: Yes (Hospitalization)
  Sender: FDA-Public Use
  Company Number: 004956

PATIENT
  Age: 74 Year
  Sex: Female
  Weight: 52.4 kg

DRUGS (10)
  1. PLETAL [Suspect]
     Indication: CEREBRAL INFARCTION
     Dosage: 81 MG, QD, ORAL
     Route: 048
     Dates: start: 20050618, end: 20081016
  2. MAGNESIUM OXIDE (MAGNESIUM OXIDE) POWDER [Concomitant]
  3. DEPAS (ETIZOLAM) TABLET [Concomitant]
  4. DOXAZOSIN MESYLATE [Concomitant]
  5. MOHRUS (KETOPROFEN) TAPE (INCLUDING POULTICE) [Concomitant]
  6. MUCODYNE (CARBOCISTEINE) TABLET [Concomitant]
  7. AMLODIN OD (AMLODIPINE BENSILATE) TABLET [Concomitant]
  8. RINDERON (BETHAMETHASONE SODIUM PHOSPHATE) INJECTION [Concomitant]
  9. PANIMYCIN (DIBEKACIN SULFATE) INJECTION [Concomitant]
  10. ISOTONIC SODIUM CHLORIDE SOLUTION (ISOTONIC SODIUM CHLORIDE SOLUTION) [Concomitant]

REACTIONS (1)
  - BREAST CANCER FEMALE [None]
